FAERS Safety Report 4365795-4 (Version None)
Quarter: 2004Q2

REPORT INFORMATION
  Report Type: 
  Country: None (occurrence: None)
  Receive Date: 20040521
  Receipt Date: 20040510
  Transmission Date: 20050107
  Serious: Yes (Other)
  Sender: FDA-Public Use
  Company Number: 2004213136AU

PATIENT

DRUGS (1)
  1. AROMASIN [Suspect]

REACTIONS (2)
  - ATRIAL FIBRILLATION [None]
  - HYPERTENSION [None]
